FAERS Safety Report 12699977 (Version 1)
Quarter: 2016Q3

REPORT INFORMATION
  Report Type: Spontaneous
  Country: CN (occurrence: CN)
  Receive Date: 20160830
  Receipt Date: 20160830
  Transmission Date: 20161109
  Serious: Yes (Other)
  Sender: FDA-Public Use
  Company Number: CN-JNJFOC-20160818161

PATIENT

DRUGS (2)
  1. TOPIRAMATE. [Suspect]
     Active Substance: TOPIRAMATE
     Indication: TOURETTE^S DISORDER
     Dosage: FINAL TREATMENT DOSE OF 2 ~ 3 MG/(KG ? D)
     Route: 048
  2. TOPIRAMATE. [Suspect]
     Active Substance: TOPIRAMATE
     Indication: TOURETTE^S DISORDER
     Route: 048

REACTIONS (6)
  - Unresponsive to stimuli [Unknown]
  - Off label use [Unknown]
  - Product use issue [Unknown]
  - Decreased appetite [Unknown]
  - Attention deficit/hyperactivity disorder [Unknown]
  - Somnolence [Unknown]
